FAERS Safety Report 18701622 (Version 1)
Quarter: 2021Q1

REPORT INFORMATION
  Report Type: Spontaneous
  Country: US (occurrence: US)
  Receive Date: 20210105
  Receipt Date: 20210105
  Transmission Date: 20210419
  Serious: Yes (Life-Threatening, Other)
  Sender: FDA-Public Use
  Company Number: US-PFIZER INC-2020513136

PATIENT
  Age: 47 Year
  Sex: Male

DRUGS (1)
  1. DAPTOMYCIN. [Suspect]
     Active Substance: DAPTOMYCIN
     Indication: DIVERTICULITIS
     Dosage: UNK
     Route: 042

REACTIONS (4)
  - Liver abscess [Recovered/Resolved]
  - Portal vein phlebitis [Recovered/Resolved]
  - Drug ineffective [Recovered/Resolved]
  - Metastasis [Recovered/Resolved]
